FAERS Safety Report 20392589 (Version 1)
Quarter: 2022Q1

REPORT INFORMATION
  Report Type: Spontaneous
  Country: CH (occurrence: CH)
  Receive Date: 20220128
  Receipt Date: 20220128
  Transmission Date: 20220423
  Serious: Yes (Hospitalization)
  Sender: FDA-Public Use
  Company Number: CH-SM-2018-11714

PATIENT
  Age: 64 Year
  Sex: Female
  Weight: 63.3 kg

DRUGS (12)
  1. SPIRONOLACTONE [Suspect]
     Active Substance: SPIRONOLACTONE
     Dosage: 100 MILLIGRAM DAILY; THERAPY START DATE NOT KNOWN
     Route: 048
     Dates: end: 20180708
  2. QUETIAPINE [Suspect]
     Active Substance: QUETIAPINE
     Dosage: 75 MILLIGRAM DAILY;
     Route: 048
     Dates: start: 201806, end: 20180807
  3. PREGABALIN [Suspect]
     Active Substance: PREGABALIN
     Dosage: 150 MILLIGRAM DAILY; EXACT DATE OF THERAPY NOT KNOWN, RECENT DOSE INCREASE (JUNE 2018)
     Route: 048
     Dates: end: 20180807
  4. RISPERDAL [Suspect]
     Active Substance: RISPERIDONE
     Dosage: 3 MILLIGRAM DAILY; THERAPY START DATE NOT KNOWN?REDUCTION IN DOSAGE ON DISCHARGE (1 MG/DAY)
     Route: 048
  5. HERBALS [Suspect]
     Active Substance: HERBALS
     Dosage: THERAPY START DATE NOT KNOWN, VALVERDE SYRUP
     Route: 065
     Dates: end: 20180807
  6. DIGOXIN [Concomitant]
     Active Substance: DIGOXIN
     Dosage: .125 MILLIGRAM DAILY; DIGOXIN-JUVISE (THE ACTUAL PRODUCT WAS NOT FOUND BY CODE)
     Route: 048
  7. TORSEMIDE [Concomitant]
     Active Substance: TORSEMIDE
     Dosage: 15 MILLIGRAM DAILY;
     Route: 048
  8. ZOLPIDEM TARTRATE [Concomitant]
     Active Substance: ZOLPIDEM TARTRATE
     Dosage: 5 MILLIGRAM DAILY;
     Route: 048
  9. KETALGIN NOS [Concomitant]
     Active Substance: KETOROLAC TROMETHAMINE OR METHADONE
     Dosage: 15 MILLIGRAM DAILY;
     Route: 048
  10. CINNARIZINE\DIMENHYDRINATE [Concomitant]
     Active Substance: CINNARIZINE\DIMENHYDRINATE
     Dosage: 3 DOSAGE FORMS DAILY;
     Route: 048
  11. MUXOL [Concomitant]
     Active Substance: AMBROXOL HYDROCHLORIDE
     Dosage: 20 MILLIGRAM DAILY;
     Route: 048
  12. SODIUM PICOSULFATE [Concomitant]
     Active Substance: SODIUM PICOSULFATE
     Dosage: 12 GTT DAILY;
     Route: 048

REACTIONS (1)
  - Hepatocellular injury [Recovering/Resolving]

NARRATIVE: CASE EVENT DATE: 20180807
